FAERS Safety Report 13375885 (Version 1)
Quarter: 2017Q1

REPORT INFORMATION
  Report Type: Spontaneous
  Country: FR (occurrence: FR)
  Receive Date: 20170328
  Receipt Date: 20170328
  Transmission Date: 20170429
  Serious: Yes (Death, Hospitalization)
  Sender: FDA-Public Use
  Company Number: FR-ACCORD-049488

PATIENT
  Age: 33 Year
  Sex: Male
  Weight: 65 kg

DRUGS (2)
  1. FLUOROURACIL ACCORD [Suspect]
     Active Substance: FLUOROURACIL
     Indication: SALIVARY GLAND CANCER
     Route: 042
     Dates: start: 20160905
  2. OXALIPLATIN ACCORD [Suspect]
     Active Substance: OXALIPLATIN
     Indication: SALIVARY GLAND CANCER
     Route: 042
     Dates: start: 20160905

REACTIONS (9)
  - Septic shock [Fatal]
  - Diarrhoea [Fatal]
  - Conjunctivitis [Not Recovered/Not Resolved]
  - Off label use [Unknown]
  - Metabolic acidosis [Not Recovered/Not Resolved]
  - Mucosal inflammation [Not Recovered/Not Resolved]
  - Hypovolaemic shock [Fatal]
  - Erythema [Not Recovered/Not Resolved]
  - Melaena [Not Recovered/Not Resolved]

NARRATIVE: CASE EVENT DATE: 20160910
